FAERS Safety Report 6483576-2 (Version None)
Quarter: 2009Q4

REPORT INFORMATION
  Report Type: 
  Country: None (occurrence: None)
  Receive Date: 20091208
  Receipt Date: 20091208
  Transmission Date: 20100525
  Serious: Yes (Other)
  Sender: FDA-Public Use
  Company Number: None

PATIENT
  Age: 72 Year
  Sex: Male
  Weight: 83.9154 kg

DRUGS (2)
  1. PRILOSEC [Suspect]
     Indication: GASTROOESOPHAGEAL REFLUX DISEASE
     Dosage: 20MG DAILY BUCCAL
     Route: 002
     Dates: start: 20091126, end: 20091202
  2. OMEPRAZOLE [Suspect]
     Indication: GASTROOESOPHAGEAL REFLUX DISEASE
     Dosage: 20MG DAILEY BUCCAL
     Route: 002
     Dates: start: 20091203, end: 20091205

REACTIONS (2)
  - INHIBITORY DRUG INTERACTION [None]
  - LIBIDO DECREASED [None]
